FAERS Safety Report 16943698 (Version 1)
Quarter: 2019Q4

REPORT INFORMATION
  Report Type: Spontaneous
  Country: US (occurrence: US)
  Receive Date: 20191022
  Receipt Date: 20191022
  Transmission Date: 20200122
  Serious: No
  Sender: FDA-Public Use
  Company Number: US-JNJFOC-20191017937

PATIENT

DRUGS (2)
  1. MENS ROGAINE EXTRA STRENGTH [Suspect]
     Active Substance: MINOXIDIL
     Indication: PRODUCT USED FOR UNKNOWN INDICATION
     Dosage: APPLYING 2 TIMES A DAY MOST OF TIMES, AT MINIMUM APPLIED ONCE A DAY
     Route: 061
     Dates: start: 20190903
  2. MENS ROGAINE EXTRA STRENGTH [Suspect]
     Active Substance: MINOXIDIL
     Dosage: APPLYING 2 TIMES A DAY MOST OF TIMES, AT MINIMUM APPLIED ONCE A DAY
     Route: 061

REACTIONS (2)
  - Inappropriate schedule of product administration [Unknown]
  - Alopecia [Unknown]

NARRATIVE: CASE EVENT DATE: 201909
